FAERS Safety Report 23760190 (Version 8)
Quarter: 2025Q2

REPORT INFORMATION
  Report Type: Report from Study
  Country: US (occurrence: US)
  Receive Date: 20240419
  Receipt Date: 20250623
  Transmission Date: 20250717
  Serious: Yes (Other)
  Sender: TAKEDA
  Company Number: US-TAKEDA-2023TUS063755

PATIENT
  Sex: Female
  Weight: 81 kg

DRUGS (44)
  1. HUMAN IMMUNOGLOBULIN G [Suspect]
     Active Substance: HUMAN IMMUNOGLOBULIN G
     Indication: Immunodeficiency common variable
     Dosage: 24 GRAM, Q2WEEKS
     Dates: start: 20230612
  2. HUMAN IMMUNOGLOBULIN G [Suspect]
     Active Substance: HUMAN IMMUNOGLOBULIN G
     Indication: Immunodeficiency
     Dosage: 24 GRAM, Q2WEEKS
     Dates: start: 20230613
  3. HUMAN IMMUNOGLOBULIN G [Suspect]
     Active Substance: HUMAN IMMUNOGLOBULIN G
     Dosage: 24 GRAM, Q2WEEKS
  4. REZDIFFRA [Suspect]
     Active Substance: RESMETIROM
     Indication: Product used for unknown indication
  5. COVID-19 VACCINE NOS [Suspect]
     Active Substance: COVID-19 VACCINE
     Indication: Product used for unknown indication
  6. EPINEPHRINE [Concomitant]
     Active Substance: EPINEPHRINE
  7. ACETAMINOPHEN [Concomitant]
     Active Substance: ACETAMINOPHEN
  8. OMEGA-3-ACID ETHYL ESTERS [Concomitant]
     Active Substance: OMEGA-3-ACID ETHYL ESTERS
  9. METFORMIN HYDROCHLORIDE [Concomitant]
     Active Substance: METFORMIN HYDROCHLORIDE
  10. VITAMIN C [Concomitant]
     Active Substance: ASCORBIC ACID
  11. MELATONIN [Concomitant]
     Active Substance: MELATONIN
  12. ESTRADIOL [Concomitant]
     Active Substance: ESTRADIOL
     Dosage: UNK UNK, 2/WEEK
  13. ROSUVASTATIN CALCIUM [Concomitant]
     Active Substance: ROSUVASTATIN CALCIUM
  14. PREDNISONE [Concomitant]
     Active Substance: PREDNISONE
  15. FIORICET [Concomitant]
     Active Substance: ACETAMINOPHEN\BUTALBITAL\CAFFEINE
  16. ACETAMINOPHEN\HYDROCODONE [Concomitant]
     Active Substance: ACETAMINOPHEN\HYDROCODONE
  17. WELLBUTRIN XL [Concomitant]
     Active Substance: BUPROPION HYDROCHLORIDE
  18. BISOPROLOL FUMARATE [Concomitant]
     Active Substance: BISOPROLOL FUMARATE
  19. LYRICA [Concomitant]
     Active Substance: PREGABALIN
  20. VITAMIN D3 [Concomitant]
     Active Substance: CHOLECALCIFEROL
  21. VITAMIN E [Concomitant]
     Active Substance: .ALPHA.-TOCOPHEROL
  22. MAGNESIUM [Concomitant]
     Active Substance: MAGNESIUM
  23. YUVAFEM [Concomitant]
     Active Substance: ESTRADIOL HEMIHYDRATE
  24. ONDANSETRON [Concomitant]
     Active Substance: ONDANSETRON
  25. HYDROCODONE BITARTRATE AND ACETAMINOPHEN [Concomitant]
     Active Substance: ACETAMINOPHEN\HYDROCODONE BITARTRATE
  26. ROSUVASTATIN [Concomitant]
     Active Substance: ROSUVASTATIN
  27. LIDOCAINE [Concomitant]
     Active Substance: LIDOCAINE
  28. ARMODAFINIL [Concomitant]
     Active Substance: ARMODAFINIL
  29. FAMOTIDINE [Concomitant]
     Active Substance: FAMOTIDINE
  30. OZEMPIC [Concomitant]
     Active Substance: SEMAGLUTIDE
  31. CLARINEX [Concomitant]
     Active Substance: DESLORATADINE
  32. ZOLPIDEM [Concomitant]
     Active Substance: ZOLPIDEM TARTRATE
  33. NURTEC ODT [Concomitant]
     Active Substance: RIMEGEPANT SULFATE
  34. DIPHENHYDRAMINE HYDROCHLORIDE [Concomitant]
     Active Substance: DIPHENHYDRAMINE HYDROCHLORIDE
  35. 3,3^-DIINDOLYLMETHANE [Concomitant]
     Active Substance: 3,3^-DIINDOLYLMETHANE
  36. METAXALONE [Concomitant]
     Active Substance: METAXALONE
  37. ASPIRIN [Concomitant]
     Active Substance: ASPIRIN
  38. ONDANSETRON HYDROCHLORIDE [Concomitant]
     Active Substance: ONDANSETRON HYDROCHLORIDE
  39. PROGESTERONE [Concomitant]
     Active Substance: PROGESTERONE
  40. BOTOX [Concomitant]
     Active Substance: ONABOTULINUMTOXINA
  41. OMEGA 3 [Concomitant]
     Active Substance: CAPSAICIN
  42. METFORMIN [Concomitant]
     Active Substance: METFORMIN HYDROCHLORIDE
  43. ZOLPIDEM TARTRATE [Concomitant]
     Active Substance: ZOLPIDEM TARTRATE
  44. FENOFIBRATE [Concomitant]
     Active Substance: FENOFIBRATE

REACTIONS (27)
  - Pneumonia [Unknown]
  - Thrombosis [Recovered/Resolved]
  - Urinary tract infection fungal [Unknown]
  - Gastrointestinal disorder [Unknown]
  - Eyelid infection [Unknown]
  - Skin infection [Unknown]
  - Postoperative wound infection [Unknown]
  - Product dose omission issue [Unknown]
  - Candida infection [Unknown]
  - Hepatic enzyme increased [Recovered/Resolved]
  - Dry mouth [Unknown]
  - Liver function test increased [Recovered/Resolved]
  - Urinary tract infection [Unknown]
  - Fungal infection [Unknown]
  - Sinusitis [Unknown]
  - Infusion site haemorrhage [Unknown]
  - Infusion site urticaria [Recovered/Resolved]
  - Somnolence [Recovering/Resolving]
  - Infusion site discomfort [Unknown]
  - Rash [Unknown]
  - Infusion site erythema [Recovered/Resolved]
  - Infusion site swelling [Recovered/Resolved]
  - Migraine [Unknown]
  - Infusion site pain [Unknown]
  - Dizziness [Recovered/Resolved]
  - Fatigue [Unknown]
  - Nausea [Recovered/Resolved]
